FAERS Safety Report 18672587 (Version 1)
Quarter: 2020Q4

REPORT INFORMATION
  Report Type: Spontaneous
  Country: EG (occurrence: EG)
  Receive Date: 20201229
  Receipt Date: 20201229
  Transmission Date: 20210114
  Serious: Yes (Life-Threatening)
  Sender: FDA-Public Use
  Company Number: EG-HIKMA PHARMACEUTICALS USA INC.-EG-H14001-20-05745

PATIENT
  Age: 52 Year
  Sex: Female

DRUGS (1)
  1. CARBOTINOL [Suspect]
     Active Substance: CARBOPLATIN
     Indication: NEOPLASM MALIGNANT
     Dosage: 450MG/45ML
     Route: 041
     Dates: start: 20201103, end: 20201103

REACTIONS (4)
  - Erythema [Unknown]
  - Hypotension [Unknown]
  - Hypoaesthesia [Unknown]
  - Dyspnoea [Unknown]

NARRATIVE: CASE EVENT DATE: 20201103
